FAERS Safety Report 5578895-8 (Version None)
Quarter: 2008Q1

REPORT INFORMATION
  Report Type: 
  Country: None (occurrence: None)
  Receive Date: 20080102
  Receipt Date: 20071129
  Transmission Date: 20080703
  Serious: No
  Sender: FDA-Public Use
  Company Number: US-BAYER-200712924BWH

PATIENT
  Age: 91 Year
  Sex: Male

DRUGS (6)
  1. LEVITRA [Suspect]
     Indication: DRUG USE FOR UNKNOWN INDICATION
     Dosage: AS USED: 10 MG  UNIT DOSE: 10 MG
     Route: 048
     Dates: start: 20070701
  2. LEVITRA [Suspect]
     Dosage: TOTAL DAILY DOSE: 20 MG  UNIT DOSE: 20 MG
     Route: 048
     Dates: start: 20070826
  3. TOPROL-XL [Concomitant]
  4. RED YEAST RICE [Concomitant]
  5. VITAMINS [Concomitant]
  6. CHONDROITIN [Concomitant]

REACTIONS (4)
  - ANXIETY [None]
  - CHILLS [None]
  - DRUG USE FOR UNKNOWN INDICATION [None]
  - TREMOR [None]
